FAERS Safety Report 6789165-4 (Version None)
Quarter: 2010Q2

REPORT INFORMATION
  Report Type: 
  Country: None (occurrence: None)
  Receive Date: 20100623
  Receipt Date: 20080702
  Transmission Date: 20101027
  Serious: No
  Sender: FDA-Public Use
  Company Number: US-PFIZER INC-2008055679

PATIENT
  Sex: Female
  Weight: 65.909 kg

DRUGS (3)
  1. XALATAN [Suspect]
     Indication: GLAUCOMA
     Route: 047
     Dates: start: 20080501, end: 20080601
  2. AMITRIPTYLINE [Concomitant]
  3. PREDNISONE [Concomitant]

REACTIONS (9)
  - BONE SWELLING [None]
  - DRUG DOSE OMISSION [None]
  - DYSSTASIA [None]
  - FEELING HOT [None]
  - JOINT RANGE OF MOTION DECREASED [None]
  - MUSCULAR WEAKNESS [None]
  - MYALGIA [None]
  - NECK PAIN [None]
  - PAIN IN EXTREMITY [None]
